FAERS Safety Report 11286005 (Version 1)
Quarter: 2015Q3

REPORT INFORMATION
  Report Type: Spontaneous
  Country: US (occurrence: US)
  Receive Date: 20150721
  Receipt Date: 20150721
  Transmission Date: 20151125
  Serious: No
  Sender: FDA-Public Use
  Company Number: US-009507513-1507USA003189

PATIENT
  Sex: Female

DRUGS (1)
  1. NEXPLANON [Suspect]
     Active Substance: ETONOGESTREL
     Indication: CONTRACEPTION
     Dosage: 1 DF, Q3W (ONCE EVERY 3 WEEKS), INSERTION(SUBDERMAL)
     Route: 059
     Dates: start: 2015

REACTIONS (2)
  - Discomfort [Unknown]
  - Device kink [Unknown]

NARRATIVE: CASE EVENT DATE: 2015
